FAERS Safety Report 23251237 (Version 1)
Quarter: 2023Q4

REPORT INFORMATION
  Report Type: Spontaneous
  Country: US (occurrence: None)
  Receive Date: 20231130
  Receipt Date: 20231130
  Transmission Date: 20240110
  Serious: No
  Sender: FDA-Public Use
  Company Number: None

PATIENT
  Age: 50 Year
  Sex: Male
  Weight: 167.83 kg

DRUGS (1)
  1. INFLECTRA [Suspect]
     Active Substance: INFLIXIMAB-DYYB
     Indication: Rheumatoid arthritis
     Dosage: FREQUENCY : AS DIRECTED;?INFUSE 840MG INTRAVENOUSLY AT WEEKS 0,2 AND 6 AS DIRECTED,?
     Route: 042
     Dates: start: 202307

REACTIONS (1)
  - Gallbladder disorder [None]
